FAERS Safety Report 4323360-9 (Version None)
Quarter: 2004Q1

REPORT INFORMATION
  Report Type: 
  Country: None (occurrence: None)
  Receive Date: 20040323
  Receipt Date: 20040210
  Transmission Date: 20041129
  Serious: No
  Sender: FDA-Public Use
  Company Number: USA040259001

PATIENT
  Age: 56 Year
  Sex: Male
  Weight: 123 kg

DRUGS (2)
  1. CIALIS [Suspect]
     Dosage: 20 MG/AS NEEDED
     Dates: start: 20040203
  2. PAROXETINE HCL [Concomitant]

REACTIONS (2)
  - DRUG INEFFECTIVE [None]
  - INTENTIONAL OVERDOSE [None]
